FAERS Safety Report 10409533 (Version 1)
Quarter: 2014Q3

REPORT INFORMATION
  Report Type: Spontaneous
  Country: US (occurrence: None)
  Receive Date: 20140825
  Receipt Date: 20140825
  Transmission Date: 20150326
  Serious: No
  Sender: FDA-Public Use
  Company Number: None

PATIENT
  Age: 46 Year
  Sex: Female
  Weight: 94.4 kg

DRUGS (3)
  1. CARBOPLATIN. [Suspect]
     Active Substance: CARBOPLATIN
     Dates: start: 20100819
  2. TAXOTERE [Suspect]
     Active Substance: DOCETAXEL
     Dates: start: 20100819
  3. HERCEPTIN [Suspect]
     Active Substance: TRASTUZUMAB
     Dates: start: 20100902

REACTIONS (2)
  - Thrombocytopenia [None]
  - Platelet transfusion [None]

NARRATIVE: CASE EVENT DATE: 20100909
